FAERS Safety Report 9460366 (Version 1)
Quarter: 2013Q3

REPORT INFORMATION
  Report Type: Spontaneous
  Country: GB (occurrence: GB)
  Receive Date: 20130815
  Receipt Date: 20130815
  Transmission Date: 20140515
  Serious: Yes (Other)
  Sender: FDA-Public Use
  Company Number: GB-WATSON-2013-14126

PATIENT
  Age: 24 Year
  Sex: Female

DRUGS (2)
  1. METHYLPREDNISOLONE (UNKNOWN) [Suspect]
     Indication: COMPLEX REGIONAL PAIN SYNDROME
     Dosage: 100 MG, SINGLE
     Route: 042
  2. PRILOCAINE [Suspect]
     Indication: COMPLEX REGIONAL PAIN SYNDROME
     Dosage: 30 ML 0.5%, SINGLE
     Route: 042

REACTIONS (1)
  - Skin hyperpigmentation [Recovered/Resolved with Sequelae]
